FAERS Safety Report 4876096-X (Version None)
Quarter: 2006Q1

REPORT INFORMATION
  Report Type: 
  Country: None (occurrence: None)
  Receive Date: 20060106
  Receipt Date: 20060106
  Transmission Date: 20060701
  Serious: Yes (Other)
  Sender: FDA-Public Use
  Company Number: None

PATIENT

DRUGS (1)
  1. TOPAMAX [Suspect]
     Dosage: TABLET

REACTIONS (7)
  - ALTERED VISUAL DEPTH PERCEPTION [None]
  - ANGLE CLOSURE GLAUCOMA [None]
  - EYE SWELLING [None]
  - HALO VISION [None]
  - PAIN [None]
  - SWELLING FACE [None]
  - VISUAL ACUITY REDUCED [None]
